FAERS Safety Report 9437105 (Version 2)
Quarter: 2014Q1

REPORT INFORMATION
  Report Type: Other
  Country: FR (occurrence: FR)
  Receive Date: 20130802
  Receipt Date: 20140311
  Transmission Date: 20141002
  Serious: Yes (Hospitalization, Disabling, Other)
  Sender: FDA-Public Use
  Company Number: FR-MPIJNJ-2013-05553

PATIENT
  Sex: 0

DRUGS (23)
  1. VELCADE [Suspect]
     Indication: PLASMA CELL MYELOMA
     Dosage: 1.3 UNK, UNK
     Route: 042
     Dates: start: 20101125, end: 20101227
  2. VELCADE [Suspect]
     Dosage: 1.3 MG/M2, UNK
     Route: 042
     Dates: start: 20110113, end: 20110203
  3. VELCADE [Suspect]
     Dosage: UNK
     Route: 042
     Dates: start: 20110215, end: 20110310
  4. VELCADE [Suspect]
     Dosage: 1 MG/M2, UNK
     Route: 042
     Dates: start: 20110412, end: 20110503
  5. VELCADE [Suspect]
     Dosage: 1 MG/M2, UNK
     Route: 042
  6. VELCADE [Suspect]
     Dosage: 0.7 UNK, UNK
     Route: 042
  7. ALKERAN [Suspect]
     Indication: PLASMA CELL MYELOMA
     Dosage: 2 MG, UNK
     Route: 048
     Dates: start: 20101125
  8. PREDNISONE [Suspect]
     Indication: PLASMA CELL MYELOMA
     Dosage: UNK
     Route: 048
     Dates: start: 20101125
  9. REVLIMID [Suspect]
     Dosage: 25 MG, UNK
     Route: 065
  10. REVLIMID [Suspect]
     Dosage: 15 MG, QD
     Dates: start: 20111005, end: 20111026
  11. IMOVANE [Concomitant]
  12. IMODIUM                            /00384302/ [Concomitant]
  13. SERESTA [Concomitant]
  14. DEROXAT [Concomitant]
  15. LYRICA [Concomitant]
  16. KARDEGIC                           /00002703/ [Concomitant]
  17. LOXEN [Concomitant]
  18. ARIXTRA [Concomitant]
     Indication: PHLEBITIS
  19. TERBINAFINA [Concomitant]
  20. ZYMAD [Concomitant]
     Indication: VITAMIN D DEFICIENCY
     Dosage: UNK
     Dates: start: 20101220
  21. ZYMAD [Concomitant]
     Indication: HYPOCALCAEMIA
  22. ZOMETA [Concomitant]
     Dosage: 4 MG, UNK
  23. DEXAMETHASONE                      /00016002/ [Concomitant]
     Dosage: 40 MG, 1/WEEK
     Route: 048

REACTIONS (12)
  - Peripheral sensorimotor neuropathy [Recovered/Resolved]
  - Psychomotor skills impaired [Unknown]
  - Apathy [Unknown]
  - Thrombocytopenia [Unknown]
  - Neuropathy peripheral [Unknown]
  - Neuropathy peripheral [Unknown]
  - Tremor [Unknown]
  - Cogwheel rigidity [Unknown]
  - Hypocalcaemia [Unknown]
  - Electrocardiogram QT prolonged [Unknown]
  - Paraesthesia [Unknown]
  - Muscle spasms [Unknown]
